FAERS Safety Report 16561170 (Version 1)
Quarter: 2019Q3

REPORT INFORMATION
  Report Type: Report from Study
  Country: GT (occurrence: GT)
  Receive Date: 20190711
  Receipt Date: 20190711
  Transmission Date: 20191004
  Serious: Yes (Other)
  Sender: FDA-Public Use
  Company Number: GT-SA-2019SA187387

PATIENT
  Age: 73 Year
  Sex: Male

DRUGS (2)
  1. NATRILIX [INDAPAMIDE] [Concomitant]
     Dosage: 1 DF, QD
     Route: 048
     Dates: start: 2016, end: 201905
  2. IRBESARTAN. [Suspect]
     Active Substance: IRBESARTAN
     Indication: HYPERTENSION
     Dosage: 1 DF, QD (1 ORAL TABLET OF 150 MG OF IRBESARTAN, EVERY 24 HOURS)
     Route: 048
     Dates: start: 2016, end: 201905

REACTIONS (1)
  - Myocardial infarction [Recovering/Resolving]

NARRATIVE: CASE EVENT DATE: 201903
